FAERS Safety Report 20247826 (Version 2)
Quarter: 2023Q4

REPORT INFORMATION
  Report Type: Spontaneous
  Country: US (occurrence: US)
  Receive Date: 20211229
  Receipt Date: 20231010
  Transmission Date: 20240109
  Serious: No
  Sender: FDA-Public Use
  Company Number: US-SA-SAC20211225000216

PATIENT
  Age: 58 Year
  Sex: Male

DRUGS (6)
  1. DUPIXENT [Suspect]
     Active Substance: DUPILUMAB
     Indication: Dermatitis atopic
     Dosage: 1 DF, QOW
     Route: 058
     Dates: start: 20200729
  2. PREDNISONE [Concomitant]
     Active Substance: PREDNISONE
     Indication: Arthropod sting
  3. TADALAFIL [Concomitant]
     Active Substance: TADALAFIL
  4. TAMSULOSIN [Concomitant]
     Active Substance: TAMSULOSIN
  5. LISINOPRIL [Concomitant]
     Active Substance: LISINOPRIL
  6. TACROLIMUS [Concomitant]
     Active Substance: TACROLIMUS

REACTIONS (1)
  - No adverse event [Unknown]
